FAERS Safety Report 4759558-5 (Version None)
Quarter: 2005Q3

REPORT INFORMATION
  Report Type: 
  Country: None (occurrence: None)
  Receive Date: 20050901
  Receipt Date: 20041202
  Transmission Date: 20060218
  Serious: Yes (Disabling, Congenital Anomaly)
  Sender: FDA-Public Use
  Company Number: FR-MERCK-0412FRA00008

PATIENT
  Age: 0 Day
  Sex: Male

DRUGS (10)
  1. VIOXX [Suspect]
     Dates: start: 20040316, end: 20040326
  2. FLUTICASONE PROPIONATE AND SALMETEROL XINAFOATE [Suspect]
     Dates: start: 20040112, end: 20040212
  3. FUSIDATE SODIUM [Suspect]
     Dates: start: 20040102, end: 20040109
  4. PANTOPRAZOLE [Suspect]
     Indication: PROPHYLAXIS AGAINST GASTROINTESTINAL ULCER
     Dates: start: 20040316, end: 20040330
  5. PREDNISOLONE [Concomitant]
     Dates: start: 20040101, end: 20040101
  6. CEFUROXIME [Concomitant]
     Dates: start: 20040112, end: 20040118
  7. RITIOMETAN MAGNESIUM [Concomitant]
     Dates: start: 20040101
  8. BICLOTYMOL [Concomitant]
     Dates: start: 20040101
  9. AMBROXOL [Concomitant]
     Dates: start: 20040101
  10. ACETAMINOPHEN AND CAFFEINE AND PROPOXYPHENE HYDROCHLORIDE [Concomitant]
     Dates: start: 20040301

REACTIONS (4)
  - DRUG EXPOSURE DURING PREGNANCY [None]
  - FLAT FEET [None]
  - PILONIDAL CYST CONGENITAL [None]
  - SPINAL DISORDER [None]
